FAERS Safety Report 11903285 (Version 1)
Quarter: 2016Q1

REPORT INFORMATION
  Report Type: Spontaneous
  Country: ZA (occurrence: ZA)
  Receive Date: 20160108
  Receipt Date: 20160108
  Transmission Date: 20160526
  Serious: Yes (Other)
  Sender: FDA-Public Use
  Company Number: ZA-FRESENIUS KABI-FK201600071

PATIENT
  Age: 28 Year
  Sex: Male

DRUGS (1)
  1. CLADRIBINE (MANUFACTURER UNKNOWN) [Suspect]
     Active Substance: CLADRIBINE
     Indication: MYELOPATHY
     Route: 042

REACTIONS (1)
  - Varicella zoster virus infection [Unknown]
